FAERS Safety Report 26104257 (Version 1)
Quarter: 2025Q4

REPORT INFORMATION
  Report Type: Spontaneous
  Country: US (occurrence: US)
  Receive Date: 20251130
  Receipt Date: 20251130
  Transmission Date: 20260117
  Serious: No
  Sender: JOHNSON AND JOHNSON
  Company Number: US-JNJFOC-20251147899

PATIENT

DRUGS (1)
  1. TREMFYA [Suspect]
     Active Substance: GUSELKUMAB
     Indication: Product used for unknown indication
     Dosage: FREQUENCY: AT WEEK 4 AND THEN EVERY 8 WEEKS
     Route: 065

REACTIONS (4)
  - Device deployment issue [Unknown]
  - Product leakage [Unknown]
  - Device delivery system issue [Unknown]
  - Product dose omission issue [Unknown]
